FAERS Safety Report 17860781 (Version 1)
Quarter: 2020Q2

REPORT INFORMATION
  Report Type: Spontaneous
  Country: US (occurrence: US)
  Receive Date: 20200604
  Receipt Date: 20200604
  Transmission Date: 20200714
  Serious: No
  Sender: FDA-Public Use
  Company Number: None

PATIENT
  Age: 42 Year
  Sex: Female
  Weight: 85.5 kg

DRUGS (15)
  1. TRAZODONE [Concomitant]
     Active Substance: TRAZODONE HYDROCHLORIDE
  2. MULTIVITAMIN [Concomitant]
     Active Substance: VITAMINS
  3. LACTASE [Concomitant]
     Active Substance: LACTASE
  4. N-ACETYL-CYSTEINE [Concomitant]
  5. ZYRTEC [Concomitant]
     Active Substance: CETIRIZINE HYDROCHLORIDE
  6. JUNEL FE 1/20 [Concomitant]
     Active Substance: ETHINYL ESTRADIOL\NORETHINDRONE ACETATE
  7. EVENING PRIMROSE OIL [Concomitant]
     Active Substance: EVENING PRIMROSE OIL\HERBALS
  8. VITAMIN C [Concomitant]
     Active Substance: ASCORBIC ACID
  9. ABILIFY [Concomitant]
     Active Substance: ARIPIPRAZOLE
  10. COENZYME Q10 [Concomitant]
     Active Substance: UBIDECARENONE
  11. ARIPIPRAZOLE. [Suspect]
     Active Substance: ARIPIPRAZOLE
     Indication: MOOD SWINGS
     Route: 048
     Dates: start: 20200603, end: 20200604
  12. LAMOTRIGINE. [Concomitant]
     Active Substance: LAMOTRIGINE
  13. PROBIOTICS [Concomitant]
     Active Substance: PROBIOTICS NOS
  14. MAGNESIUM [Concomitant]
     Active Substance: MAGNESIUM
  15. OMEGA-3 DHA-EPA [Concomitant]

REACTIONS (15)
  - Paraesthesia [None]
  - Nausea [None]
  - Hyperhidrosis [None]
  - Headache [None]
  - Flatulence [None]
  - Vomiting [None]
  - Respiration abnormal [None]
  - Abdominal pain [None]
  - Fear [None]
  - Abdominal pain upper [None]
  - Dizziness [None]
  - Decreased appetite [None]
  - Feeling abnormal [None]
  - Syncope [None]
  - Faecal volume increased [None]

NARRATIVE: CASE EVENT DATE: 20200604
